FAERS Safety Report 7403916-7 (Version None)
Quarter: 2011Q1

REPORT INFORMATION
  Report Type: 
  Country: None (occurrence: None)
  Receive Date: 20110331
  Receipt Date: 20110323
  Transmission Date: 20110831
  Serious: Yes (Hospitalization, Other)
  Sender: FDA-Public Use
  Company Number: 2009SP023510

PATIENT
  Age: 37 Year
  Sex: Female
  Weight: 56.6996 kg

DRUGS (2)
  1. NUVARING [Suspect]
     Indication: HORMONE LEVEL ABNORMAL
     Dosage: 1 DF;
  2. NUVARING [Suspect]
     Indication: CONTRACEPTION
     Dosage: 1 DF;

REACTIONS (6)
  - CONSTIPATION [None]
  - OVARIAN CYST [None]
  - PAIN [None]
  - CONDITION AGGRAVATED [None]
  - PELVIC PAIN [None]
  - DEEP VEIN THROMBOSIS [None]
